FAERS Safety Report 8448216-1 (Version None)
Quarter: 2012Q2

REPORT INFORMATION
  Report Type: 
  Country: None (occurrence: None)
  Receive Date: 20120619
  Receipt Date: 20120608
  Transmission Date: 20120825
  Serious: Yes (Hospitalization)
  Sender: FDA-Public Use
  Company Number: FR-VERTEX PHARMACEUTICALS INC.-000000000000000892

PATIENT
  Sex: Male

DRUGS (7)
  1. ISENTRESS [Concomitant]
  2. PEGASYS [Concomitant]
     Dosage: DOSAGE FORM: INJECTION
     Route: 058
     Dates: start: 20120115
  3. RIBAVIRIN [Concomitant]
     Dosage: DOSAGE FORM: TABLET
     Dates: start: 20120115
  4. INCIVO [Suspect]
     Indication: PRODUCT USED FOR UNKNOWN INDICATION
     Dosage: DOSAGE FORM: TABLET
     Route: 048
     Dates: start: 20120220, end: 20120401
  5. INTELENCE [Concomitant]
     Dosage: DOSAGE FORM: UNSPECIFIED
  6. RIBAVIRIN [Concomitant]
     Dosage: DOSAGE FORM: TABLET
     Dates: start: 20120220
  7. KALETRA [Concomitant]

REACTIONS (2)
  - PORPHYRIA NON-ACUTE [None]
  - OFF LABEL USE [None]
